FAERS Safety Report 4775452-8 (Version None)
Quarter: 2005Q3

REPORT INFORMATION
  Report Type: 
  Country: None (occurrence: None)
  Receive Date: 20050921
  Receipt Date: 20050921
  Transmission Date: 20060218
  Serious: Yes (Hospitalization)
  Sender: FDA-Public Use
  Company Number: None

PATIENT
  Sex: Male

DRUGS (10)
  1. PIOGLITAZONE HCL [Suspect]
     Indication: DIABETES MELLITUS
     Dosage: 30 MG DAILY PO
     Route: 048
  2. ATENOLOL [Concomitant]
  3. DIGOXIN [Concomitant]
  4. FELODIPINE [Concomitant]
  5. FERROUS SULFATE [Concomitant]
  6. FOSINOPRIL SODIUM [Concomitant]
  7. FUROSEMIDE [Concomitant]
  8. GLYBURIDE [Concomitant]
  9. ISOSORBIDE MONONITRATE [Concomitant]
  10. OMEPRAZOLE [Concomitant]

REACTIONS (3)
  - CARDIAC ARREST [None]
  - CARDIAC FAILURE CONGESTIVE [None]
  - POST PROCEDURAL COMPLICATION [None]
